FAERS Safety Report 9800069 (Version 2)
Quarter: 2015Q3

REPORT INFORMATION
  Report Type: Spontaneous
  Country: US (occurrence: US)
  Receive Date: 20140106
  Receipt Date: 20150806
  Transmission Date: 20151125
  Serious: No
  Sender: FDA-Public Use
  Company Number: US-GILEAD-2010-0032175

PATIENT
  Age: 78 Year
  Sex: Female
  Weight: 62.6 kg

DRUGS (15)
  1. WARFARIN [Concomitant]
     Active Substance: WARFARIN
  2. VITAMIN C [Concomitant]
     Active Substance: ASCORBIC ACID
  3. OXYGEN. [Concomitant]
     Active Substance: OXYGEN
  4. SILDENAFIL. [Concomitant]
     Active Substance: SILDENAFIL
  5. CALCIUM + D [Concomitant]
     Active Substance: CALCIUM\VITAMIN D
  6. REMODULIN [Concomitant]
     Active Substance: TREPROSTINIL
  7. SUPER B COMPLEX TABLET [Concomitant]
  8. POTASSIUM CHLORIDE. [Concomitant]
     Active Substance: POTASSIUM CHLORIDE
  9. TYLENOL ER [Concomitant]
     Active Substance: ACETAMINOPHEN
  10. BUPROPION SR [Concomitant]
     Active Substance: BUPROPION
  11. OMEPRAZOLE. [Concomitant]
     Active Substance: OMEPRAZOLE
  12. VIAGRA [Concomitant]
     Active Substance: SILDENAFIL CITRATE
  13. CENTRUM SILVER [Concomitant]
     Active Substance: VITAMINS
  14. LETAIRIS [Suspect]
     Active Substance: AMBRISENTAN
     Indication: PULMONARY ARTERIAL HYPERTENSION
     Route: 048
     Dates: start: 20091002
  15. FUROSEMIDE. [Concomitant]
     Active Substance: FUROSEMIDE

REACTIONS (1)
  - Dizziness [Unknown]
